FAERS Safety Report 6248962-4 (Version None)
Quarter: 2009Q2

REPORT INFORMATION
  Report Type: 
  Country: None (occurrence: None)
  Receive Date: 20090625
  Receipt Date: 20090611
  Transmission Date: 20091009
  Serious: Yes (Hospitalization, Other)
  Sender: FDA-Public Use
  Company Number: 2009AP002213

PATIENT
  Age: 56 Year
  Sex: Female

DRUGS (17)
  1. AMLODIPINE BESYLATE [Suspect]
  2. ATORVASTATIN CALCIUM [Suspect]
  3. NISOLDIPINE [Suspect]
  4. ISRADIPINE [Suspect]
  5. FUROSEMIDE [Concomitant]
  6. METOPROLOL [Concomitant]
  7. IRBESARTAN [Concomitant]
  8. CLONIDINE [Concomitant]
  9. ACETYLSALICYLIC ACID [Concomitant]
  10. FENOFIBRATE [Concomitant]
  11. PIOGLITAZONE [Concomitant]
  12. GLIMEPIRIDE [Concomitant]
  13. INSULIN [Concomitant]
  14. MULTI-VITAMINS [Concomitant]
  15. BUPROPION [Concomitant]
  16. PROCRIT [Concomitant]
  17. FOLTX [Concomitant]

REACTIONS (7)
  - ABDOMINAL PAIN [None]
  - C-REACTIVE PROTEIN INCREASED [None]
  - FAECES DISCOLOURED [None]
  - FIBROSIS [None]
  - HAEMATOCHEZIA [None]
  - NAUSEA [None]
  - SMALL BOWEL ANGIOEDEMA [None]
